FAERS Safety Report 23329458 (Version 3)
Quarter: 2023Q4

REPORT INFORMATION
  Report Type: Spontaneous
  Country: US (occurrence: US)
  Receive Date: 20231222
  Receipt Date: 20231226
  Transmission Date: 20240110
  Serious: No
  Sender: FDA-Public Use
  Company Number: US-OPELLA-2023OHG019315

PATIENT
  Sex: Female

DRUGS (1)
  1. CORTIZONE 10 INTENSIVE HEALING FOR ECZEMA [Suspect]
     Active Substance: HYDROCORTISONE
     Indication: Product used for unknown indication
     Route: 003
     Dates: start: 202311

REACTIONS (2)
  - Drug ineffective [Unknown]
  - No adverse event [Unknown]
